FAERS Safety Report 5810822-8 (Version None)
Quarter: 2008Q3

REPORT INFORMATION
  Report Type: 
  Country: None (occurrence: None)
  Receive Date: 20080710
  Receipt Date: 20080630
  Transmission Date: 20090109
  Serious: Yes (Hospitalization)
  Sender: FDA-Public Use
  Company Number: 2008AL003421

PATIENT
  Age: 55 Year
  Sex: Male
  Weight: 89.3586 kg

DRUGS (5)
  1. DIGOXIN [Suspect]
     Indication: CARDIAC HYPERTROPHY
     Dosage: 0.25MG/20MG DAILY PO
     Route: 048
     Dates: start: 20040204, end: 20080427
  2. LASIX [Concomitant]
  3. SPIRONOLACTONE [Concomitant]
  4. POTASSIUM CHLORIDE [Concomitant]
  5. K-DUR [Concomitant]

REACTIONS (8)
  - CHEST PAIN [None]
  - DRY SKIN [None]
  - DYSPNOEA [None]
  - FEELING COLD [None]
  - RASH [None]
  - SOMNOLENCE [None]
  - TREMOR [None]
  - WITHDRAWAL SYNDROME [None]
